FAERS Safety Report 22041639 (Version 1)
Quarter: 2023Q1

REPORT INFORMATION
  Report Type: Spontaneous
  Country: US (occurrence: US)
  Receive Date: 20230227
  Receipt Date: 20230227
  Transmission Date: 20230418
  Serious: Yes (Hospitalization)
  Sender: FDA-Public Use
  Company Number: US-JNJFOC-20230231312

PATIENT
  Age: 66 Year
  Sex: Female
  Weight: 74.910 kg

DRUGS (1)
  1. CARVYKTI [Suspect]
     Active Substance: CILTACABTAGENE AUTOLEUCEL
     Indication: Plasma cell myeloma
     Route: 042
     Dates: start: 20221117

REACTIONS (1)
  - Cranial nerve paralysis [Recovering/Resolving]

NARRATIVE: CASE EVENT DATE: 20221203
